FAERS Safety Report 23387965 (Version 1)
Quarter: 2024Q1

REPORT INFORMATION
  Report Type: Spontaneous
  Country: US (occurrence: None)
  Receive Date: 20240109
  Receipt Date: 20240109
  Transmission Date: 20240409
  Serious: No
  Sender: FDA-Public Use
  Company Number: None

PATIENT
  Age: 70 Year
  Sex: Male
  Weight: 117.03 kg

DRUGS (12)
  1. COSENTYX [Suspect]
     Active Substance: SECUKINUMAB
     Indication: Psoriasis
     Dates: start: 202101, end: 202107
  2. ROSUVASTATIN [Concomitant]
     Active Substance: ROSUVASTATIN
  3. PANTOPRAZOLE [Concomitant]
     Active Substance: PANTOPRAZOLE
  4. SUCRALFATE [Concomitant]
     Active Substance: SUCRALFATE
  5. FAMOTIDINE [Concomitant]
     Active Substance: FAMOTIDINE
  6. DIETARY SUPPLEMENT\HERBALS\MILK THISTLE [Concomitant]
     Active Substance: MILK THISTLE
  7. DANDELION [Concomitant]
     Active Substance: TARAXACUM OFFICINALE POLLEN
  8. YELLOW DOCK [Concomitant]
     Active Substance: RUMEX CRISPUS POLLEN
  9. VITAMINS [Concomitant]
     Active Substance: VITAMINS
  10. LEVOMEFOLIC ACID [Concomitant]
     Active Substance: LEVOMEFOLIC ACID
  11. VITAMIN B12 [Concomitant]
     Active Substance: CYANOCOBALAMIN
  12. SELENIUM [Concomitant]
     Active Substance: SELENIUM

REACTIONS (3)
  - Suicidal ideation [None]
  - Anxiety [None]
  - Depression [None]

NARRATIVE: CASE EVENT DATE: 20210701
